FAERS Safety Report 11938042 (Version 1)
Quarter: 2016Q1

REPORT INFORMATION
  Report Type: Spontaneous
  Country: US (occurrence: None)
  Receive Date: 20160120
  Receipt Date: 20160120
  Transmission Date: 20160526
  Serious: Yes (Other)
  Sender: FDA-Public Use
  Company Number: None

PATIENT
  Age: 51 Year
  Sex: Female

DRUGS (5)
  1. OXYCODONEACETAMINOPHEN (PERCOCET) [Concomitant]
  2. ZAROXOLYN [Concomitant]
     Active Substance: METOLAZONE
  3. FUROSEMDIE (LASIX) [Concomitant]
  4. HYDROCODONE-ACETAMINOPHEN  (NORCO) [Concomitant]
  5. AMPYRA [Suspect]
     Active Substance: DALFAMPRIDINE
     Indication: MULTIPLE SCLEROSIS
     Route: 048
     Dates: start: 201204

REACTIONS (3)
  - Urinary tract infection [None]
  - Red cell distribution width abnormal [None]
  - Mean cell haemoglobin concentration abnormal [None]

NARRATIVE: CASE EVENT DATE: 20160108
